FAERS Safety Report 4390209-8 (Version None)
Quarter: 2004Q3

REPORT INFORMATION
  Report Type: 
  Country: None (occurrence: None)
  Receive Date: 20040706
  Receipt Date: 20040604
  Transmission Date: 20050211
  Serious: Yes (Other)
  Sender: FDA-Public Use
  Company Number: DE-GLAXOSMITHKLINE-D0043937A

PATIENT
  Age: 26 Year
  Sex: Female
  Weight: 94 kg

DRUGS (3)
  1. IMIGRAN [Suspect]
     Indication: MIGRAINE
     Dosage: 50MG UNKNOWN
     Route: 048
  2. ALBUTEROL SULFATE [Concomitant]
     Indication: ASTHMA
     Dosage: 2PUFF TWICE PER DAY
     Route: 055
  3. JUNIK [Concomitant]
     Indication: ASTHMA
     Dosage: 1PUFF PER DAY
     Route: 055

REACTIONS (8)
  - ASTHENIA [None]
  - CARDIOVASCULAR DISORDER [None]
  - CHEST PAIN [None]
  - FATIGUE [None]
  - HYPERHIDROSIS [None]
  - MUSCULOSKELETAL STIFFNESS [None]
  - MYALGIA [None]
  - SENSATION OF HEAVINESS [None]
